FAERS Safety Report 7119245-5 (Version None)
Quarter: 2010Q4

REPORT INFORMATION
  Report Type: 
  Country: None (occurrence: None)
  Receive Date: 20101028
  Receipt Date: 20100804
  Transmission Date: 20110411
  Serious: Yes (Life-Threatening, Hospitalization)
  Sender: FDA-Public Use
  Company Number: A-US2010-38739

PATIENT
  Age: 43 Year
  Sex: Female

DRUGS (5)
  1. VELETRI (EPOPROSTENOL SODIUM) [Suspect]
     Indication: PULMONARY ARTERIAL HYPERTENSION
     Dosage: 52 NG/KG, PER MIN, IV DRIP
     Route: 041
     Dates: start: 20100702
  2. .. [Interacting]
  3. TRACLEER [Concomitant]
  4. SIDENAFIL (SILDENAFIL) [Concomitant]
  5. COUMADIN [Concomitant]

REACTIONS (2)
  - DEVICE LEAKAGE [None]
  - HAEMORRHAGE [None]
